FAERS Safety Report 8832432 (Version 2)
Quarter: 2013Q1

REPORT INFORMATION
  Report Type: Spontaneous
  Country: US (occurrence: None)
  Receive Date: 20121005
  Receipt Date: 20121017
  Transmission Date: 20140127
  Serious: Yes (Other)
  Sender: FDA-Public Use
  Company Number: KAD201209-000442

PATIENT
  Age: 59 Year
  Sex: Male
  Weight: 96.2 kg

DRUGS (5)
  1. RIBAVIRIN [Suspect]
     Indication: HEPATITIS C
     Route: 048
     Dates: start: 201204, end: 20120912
  2. PEGASYS [Suspect]
     Indication: HEPATITIS C
     Dosage: 180 MCG WEEKLY; 2 WEEKS ON + 2 WEEKS OFF, SUBCUTANEOUS
     Route: 058
     Dates: start: 201204, end: 20120912
  3. INCIVEK [Suspect]
     Indication: HEPATITIS C
     Route: 048
     Dates: start: 201204
  4. XANAX [Concomitant]
  5. ASPIRIN [Concomitant]

REACTIONS (19)
  - Weight increased [None]
  - Skin exfoliation [None]
  - Pruritus [None]
  - Memory impairment [None]
  - Thinking abnormal [None]
  - Feeling abnormal [None]
  - Rash erythematous [None]
  - Tremor [None]
  - Insomnia [None]
  - Emotional disorder [None]
  - Dysphonia [None]
  - Throat irritation [None]
  - Psoriasis [None]
  - Malaise [None]
  - Headache [None]
  - Vomiting [None]
  - Mental disorder [None]
  - Hypersomnia [None]
  - Eye pain [None]
